FAERS Safety Report 9548471 (Version 1)
Quarter: 2013Q3

REPORT INFORMATION
  Report Type: Spontaneous
  Country: US (occurrence: US)
  Receive Date: 20130924
  Receipt Date: 20130924
  Transmission Date: 20140515
  Serious: No
  Sender: FDA-Public Use
  Company Number: US-PFIZER INC-2013273776

PATIENT
  Age: 75 Year
  Sex: Female
  Weight: 77.1 kg

DRUGS (2)
  1. ATORVASTATIN CALCIUM [Suspect]
     Indication: BLOOD CHOLESTEROL INCREASED
     Dosage: 20 MG, DAILY
     Route: 048
     Dates: start: 2013, end: 201308
  2. DICLOFENAC [Concomitant]
     Indication: ARTHRITIS
     Dosage: 75 MG, DAILY

REACTIONS (2)
  - Muscle spasms [Recovered/Resolved]
  - Pain in extremity [Recovered/Resolved]
